FAERS Safety Report 26126353 (Version 1)
Quarter: 2025Q4

REPORT INFORMATION
  Report Type: Spontaneous
  Country: CH (occurrence: CH)
  Receive Date: 20251205
  Receipt Date: 20251205
  Transmission Date: 20260117
  Serious: Yes (Hospitalization, Other)
  Sender: TEVA
  Company Number: None

PATIENT
  Age: 49 Year
  Sex: Male
  Weight: 83.9 kg

DRUGS (6)
  1. IBUPROFEN [Suspect]
     Active Substance: IBUPROFEN
     Indication: Leptospirosis
     Route: 048
     Dates: end: 202510
  2. PANTOPRAZOLE [Suspect]
     Active Substance: PANTOPRAZOLE
     Indication: Product used for unknown indication
     Dosage: 1-0-0-0 (START DATE UNKNOWN), PANTOPRAZOL MEPHA
     Route: 048
     Dates: end: 202510
  3. BISOPROLOL [Concomitant]
     Active Substance: BISOPROLOL
     Indication: Product used for unknown indication
     Route: 048
  4. NOVALGIN (METAMIZOLE SODIUM) [Suspect]
     Active Substance: METAMIZOLE SODIUM
     Indication: Leptospirosis
     Route: 048
     Dates: end: 202510
  5. DROSSADIN [Concomitant]
     Indication: Product used for unknown indication
     Dosage: THE DOSAGE AND FREQUENCY OF DROSSADIN IS UNKNOWN, ADMINISTERED AS SUPPORTIVE THERAPY
     Route: 065
  6. DOXYCYCLINE [Concomitant]
     Active Substance: DOXYCYCLINE
     Indication: Leptospirosis
     Route: 048
     Dates: start: 20250926, end: 20251103

REACTIONS (1)
  - Febrile neutropenia [Recovering/Resolving]

NARRATIVE: CASE EVENT DATE: 20251001
